FAERS Safety Report 14458673 (Version 1)
Quarter: 2018Q1

REPORT INFORMATION
  Report Type: Report from Study
  Country: None (occurrence: US)
  Receive Date: 20180130
  Receipt Date: 20180130
  Transmission Date: 20180509
  Serious: Yes (Other)
  Sender: FDA-Public Use
  Company Number: US-ABBVIE-17K-163-2040103-00

PATIENT
  Sex: Female

DRUGS (1)
  1. HUMIRA [Suspect]
     Active Substance: ADALIMUMAB
     Indication: PSORIASIS
     Route: 058
     Dates: start: 2001

REACTIONS (7)
  - Atrial fibrillation [Recovered/Resolved]
  - Uterine prolapse [Recovered/Resolved]
  - Vaginal prolapse [Unknown]
  - Bladder prolapse [Unknown]
  - Adhesion [Unknown]
  - Myocardial infarction [Recovered/Resolved]
  - Skin discolouration [Unknown]

NARRATIVE: CASE EVENT DATE: 2015
